FAERS Safety Report 6708778-9 (Version None)
Quarter: 2010Q2

REPORT INFORMATION
  Report Type: 
  Country: None (occurrence: None)
  Receive Date: 20100504
  Receipt Date: 20100422
  Transmission Date: 20101027
  Serious: No
  Sender: FDA-Public Use
  Company Number: US-BIOGENIDEC-2010BI014181

PATIENT
  Sex: Male

DRUGS (1)
  1. TYSABRI [Suspect]
     Indication: MULTIPLE SCLEROSIS
     Route: 042
     Dates: start: 20070329

REACTIONS (6)
  - FALL [None]
  - FATIGUE [None]
  - FRACTURED COCCYX [None]
  - INTERVERTEBRAL DISC DISORDER [None]
  - INTERVERTEBRAL DISC PROTRUSION [None]
  - PARAESTHESIA [None]
